FAERS Safety Report 13408317 (Version 1)
Quarter: 2017Q2

REPORT INFORMATION
  Report Type: Spontaneous
  Country: ES (occurrence: ES)
  Receive Date: 20170406
  Receipt Date: 20170406
  Transmission Date: 20170830
  Serious: Yes (Other)
  Sender: FDA-Public Use
  Company Number: ES-ALVOGEN-2017-ALVOGEN-091863

PATIENT
  Age: 56 Year
  Sex: Male
  Weight: 106 kg

DRUGS (1)
  1. TENORETIC [Suspect]
     Active Substance: ATENOLOL\CHLORTHALIDONE
     Indication: HYPERTENSION
     Dosage: 100 MG/25 MG, DAILY
     Route: 048
     Dates: start: 20170120, end: 20170313

REACTIONS (5)
  - Lip oedema [Not Recovered/Not Resolved]
  - Pruritus [Not Recovered/Not Resolved]
  - Tongue oedema [Not Recovered/Not Resolved]
  - Angioedema [Not Recovered/Not Resolved]
  - Urticaria [Not Recovered/Not Resolved]

NARRATIVE: CASE EVENT DATE: 20170127
